FAERS Safety Report 9799517 (Version 1)
Quarter: 2014Q1

REPORT INFORMATION
  Report Type: Report from Study
  Country: US (occurrence: US)
  Receive Date: 20140106
  Receipt Date: 20140106
  Transmission Date: 20141002
  Serious: Yes (Life-Threatening, Other)
  Sender: FDA-Public Use
  Company Number: PHEH2014US000505

PATIENT
  Sex: Female
  Weight: 68.27 kg

DRUGS (1)
  1. GLEEVEC [Suspect]
     Indication: CHRONIC MYELOID LEUKAEMIA
     Dosage: 400 MG, DAILY
     Route: 048

REACTIONS (3)
  - Coma [Recovered/Resolved]
  - Renal impairment [Recovered/Resolved]
  - Thrombotic thrombocytopenic purpura [Recovered/Resolved]
